FAERS Safety Report 24466763 (Version 1)
Quarter: 2024Q4

REPORT INFORMATION
  Report Type: Report from Study
  Country: US (occurrence: US)
  Receive Date: 20241018
  Receipt Date: 20241018
  Transmission Date: 20250115
  Serious: No
  Sender: ROCHE
  Company Number: US-ROCHE-3550500

PATIENT
  Age: 68 Year
  Sex: Female
  Weight: 81.65 kg

DRUGS (6)
  1. XOLAIR [Suspect]
     Active Substance: OMALIZUMAB
     Indication: Idiopathic urticaria
     Route: 030
  2. XOLAIR [Suspect]
     Active Substance: OMALIZUMAB
     Route: 030
  3. XOLAIR [Suspect]
     Active Substance: OMALIZUMAB
     Route: 030
     Dates: end: 2023
  4. ATORVASTATIN [Concomitant]
     Active Substance: ATORVASTATIN
  5. ALLEGRA [Concomitant]
     Active Substance: FEXOFENADINE HYDROCHLORIDE
  6. CARVEDILOL [Concomitant]
     Active Substance: CARVEDILOL

REACTIONS (4)
  - Off label use [Unknown]
  - Injection site pain [Recovered/Resolved]
  - Urticaria [Not Recovered/Not Resolved]
  - Pruritus [Not Recovered/Not Resolved]

NARRATIVE: CASE EVENT DATE: 20240417
